FAERS Safety Report 9358654 (Version 1)
Quarter: 2013Q2

REPORT INFORMATION
  Report Type: Spontaneous
  Country: JP (occurrence: JP)
  Receive Date: 20130620
  Receipt Date: 20130620
  Transmission Date: 20140414
  Serious: Yes (Other)
  Sender: FDA-Public Use
  Company Number: JP-GLAXOSMITHKLINE-B0708993A

PATIENT
  Age: 37 Year
  Sex: Female

DRUGS (6)
  1. PAXIL [Suspect]
     Route: 048
  2. PAXIL [Suspect]
     Route: 048
  3. PAXIL [Suspect]
     Route: 048
  4. SODIUM VALPROATE [Concomitant]
     Route: 048
  5. SODIUM VALPROATE [Concomitant]
     Route: 048
  6. SODIUM VALPROATE [Concomitant]
     Route: 048

REACTIONS (10)
  - Exposure during pregnancy [Unknown]
  - Live birth [Unknown]
  - Intentional overdose [Unknown]
  - Hyperventilation [Unknown]
  - Iron deficiency anaemia [Unknown]
  - Anxiety [Unknown]
  - Middle insomnia [Unknown]
  - Exaggerated startle response [Unknown]
  - Urinary tract infection [Unknown]
  - Pyrexia [Unknown]
